FAERS Safety Report 11261092 (Version 2)
Quarter: 2015Q3

REPORT INFORMATION
  Report Type: Report from Study
  Country: US (occurrence: US)
  Receive Date: 20150710
  Receipt Date: 20150827
  Transmission Date: 20151125
  Serious: Yes (Other)
  Sender: FDA-Public Use
  Company Number: US-ASTRAZENECA-2015SE65893

PATIENT
  Age: 612 Month
  Sex: Female
  Weight: 53.1 kg

DRUGS (24)
  1. ZOMIG [Suspect]
     Active Substance: ZOLMITRIPTAN
     Indication: MIGRAINE
     Route: 048
  2. LEVOTHYROXINE. [Concomitant]
     Active Substance: LEVOTHYROXINE
     Indication: THYROID HORMONES DECREASED
     Dates: start: 201504
  3. CLARITIN [Concomitant]
     Active Substance: LORATADINE
     Indication: HYPERSENSITIVITY
  4. PICNOGENOL [Concomitant]
     Indication: SUPPLEMENTATION THERAPY
     Dosage: ON AND OFF
  5. CYMBALTA [Concomitant]
     Active Substance: DULOXETINE HYDROCHLORIDE
     Indication: PAIN
     Dosage: TAPERED FROM 20MG TO 60MG AND BACK DOWN TO 20 MG)
  6. ADVIL [Concomitant]
     Active Substance: IBUPROFEN
     Indication: PAIN
     Dosage: AS NEEDED
  7. CALCIUM WITH D [Concomitant]
     Active Substance: CALCIUM\VITAMIN D
     Indication: VITAMIN SUPPLEMENTATION
     Dosage: ON AND OFF
  8. ALPHA LIPOIC ACID [Concomitant]
     Active Substance: .ALPHA.-LIPOIC ACID
     Indication: SUPPLEMENTATION THERAPY
  9. RETIN-A [Concomitant]
     Active Substance: TRETINOIN
     Indication: ILL-DEFINED DISORDER
     Dosage: 0.05 OR 0.025%
  10. BOTOX [Concomitant]
     Active Substance: ONABOTULINUMTOXINA
     Indication: MIGRAINE
     Dosage: 3 TIMES
  11. ZOMIG [Suspect]
     Active Substance: ZOLMITRIPTAN
     Indication: MIGRAINE
     Dosage: ODT (AND GENERIC FORMS)
     Route: 048
  12. ALEVE [Concomitant]
     Active Substance: NAPROXEN SODIUM
  13. VITAMIN B6 [Concomitant]
     Active Substance: PYRIDOXINE HYDROCHLORIDE
     Indication: VITAMIN SUPPLEMENTATION
     Dosage: ON AND OFF
  14. VITAMIN C SERUM [Concomitant]
     Indication: ILL-DEFINED DISORDER
     Route: 061
  15. VITAMIN B COMPLEX [Concomitant]
     Active Substance: CYANOCOBALAMIN\DEXPANTHENOL\NIACINAMIDE\PYRIDOXINE HYDROCHLORIDE\RIBOFLAVIN 5^-PHOSPHATE SODIUM\THIAMINE HYDROCHLORIDE\VITAMIN B COMPLEX
     Indication: VITAMIN SUPPLEMENTATION
  16. VITAMIN B12 [Concomitant]
     Active Substance: CYANOCOBALAMIN
     Indication: VITAMIN SUPPLEMENTATION
     Dosage: ON AND OFF
  17. VITAMIN B2 [Concomitant]
     Active Substance: RIBOFLAVIN
     Indication: VITAMIN SUPPLEMENTATION
     Dosage: ON AND OFF
  18. MULTIPLE VITAMINS [Concomitant]
     Active Substance: VITAMINS
     Indication: VITAMIN SUPPLEMENTATION
     Dosage: ON AND OFF
  19. PROTEIN POWDER / WHEY [Concomitant]
     Indication: SUPPLEMENTATION THERAPY
  20. CYMBALTA [Concomitant]
     Active Substance: DULOXETINE HYDROCHLORIDE
     Indication: NERVE INJURY
     Dosage: TAPERED FROM 20MG TO 60MG AND BACK DOWN TO 20 MG)
  21. SUDAFED [Concomitant]
     Active Substance: PSEUDOEPHEDRINE HYDROCHLORIDE
     Indication: SINUS CONGESTION
     Dosage: AS NEEDED
  22. FLONASE [Concomitant]
     Active Substance: FLUTICASONE PROPIONATE
  23. XERAC [Concomitant]
     Indication: HYPERHIDROSIS
  24. LEXAPRO [Concomitant]
     Active Substance: ESCITALOPRAM OXALATE
     Indication: MIGRAINE

REACTIONS (2)
  - Thyroid cyst [Unknown]
  - Huerthle cell carcinoma [Not Recovered/Not Resolved]

NARRATIVE: CASE EVENT DATE: 201412
